FAERS Safety Report 12818438 (Version 2)
Quarter: 2017Q1

REPORT INFORMATION
  Report Type: Spontaneous
  Country: US (occurrence: US)
  Receive Date: 20161005
  Receipt Date: 20170130
  Transmission Date: 20170428
  Serious: No
  Sender: FDA-Public Use
  Company Number: US-TAIHO ONCOLOGY INC-EU-2016-02562

PATIENT
  Sex: Male
  Weight: 70.19 kg

DRUGS (2)
  1. LONSURF [Suspect]
     Active Substance: TIPIRACIL HYDROCHLORIDE\TRIFLURIDINE
     Indication: RECTAL CANCER
     Dosage: CYCLE 1
     Route: 048
     Dates: start: 20160907, end: 2016
  2. LONSURF [Suspect]
     Active Substance: TIPIRACIL HYDROCHLORIDE\TRIFLURIDINE
     Indication: RECTAL CANCER
     Dosage: CYCLE 4
     Route: 048
     Dates: start: 20161225

REACTIONS (3)
  - Fatigue [Unknown]
  - Bone marrow failure [Unknown]
  - Nausea [Unknown]

NARRATIVE: CASE EVENT DATE: 2016
